FAERS Safety Report 20421410 (Version 3)
Quarter: 2022Q1

REPORT INFORMATION
  Report Type: Spontaneous
  Country: FR (occurrence: FR)
  Receive Date: 20220203
  Receipt Date: 20220314
  Transmission Date: 20220423
  Serious: Yes (Hospitalization)
  Sender: FDA-Public Use
  Company Number: FR-CELGENE-FRA-20220101178

PATIENT
  Age: 78 Year
  Sex: Male
  Weight: 79 kg

DRUGS (21)
  1. AZACITIDINE [Suspect]
     Active Substance: AZACITIDINE
     Indication: Myelodysplastic syndrome
     Route: 058
     Dates: start: 20211018, end: 20211222
  2. PLACEBO [Suspect]
     Active Substance: UNSPECIFIED INGREDIENT
     Indication: Myelodysplastic syndrome
     Route: 048
     Dates: start: 20211018, end: 20211227
  3. PYGEUM [Concomitant]
     Active Substance: PYGEUM
     Indication: Benign prostatic hyperplasia
     Dosage: 50 MILLIGRAM
     Route: 048
  4. PRIMPERAN [Concomitant]
     Active Substance: METOCLOPRAMIDE HYDROCHLORIDE
     Indication: Nausea
     Dosage: 30 MILLIGRAM
     Route: 048
     Dates: start: 20211018, end: 20211019
  5. ZOFRAN [Concomitant]
     Active Substance: ONDANSETRON HYDROCHLORIDE
     Indication: Nausea
     Dosage: 36 MILLIGRAM
     Route: 048
     Dates: start: 20211018
  6. DIPROSONE [Concomitant]
     Active Substance: BETAMETHASONE DIPROPIONATE
     Indication: Skin lesion
     Route: 048
     Dates: start: 20211022, end: 20211228
  7. CRESEMBA [Concomitant]
     Active Substance: ISAVUCONAZONIUM SULFATE
     Indication: Antifungal prophylaxis
     Dosage: 1800 MILLIGRAM
     Route: 048
     Dates: start: 20211214, end: 20211216
  8. CRESEMBA [Concomitant]
     Active Substance: ISAVUCONAZONIUM SULFATE
     Dosage: 200 MILLIGRAM
     Route: 048
     Dates: start: 20211216
  9. CRESEMBA [Concomitant]
     Active Substance: ISAVUCONAZONIUM SULFATE
     Dosage: 200 MILLIGRAM
     Route: 048
     Dates: start: 20220117, end: 20220117
  10. SPIRAMYCIN [Concomitant]
     Active Substance: SPIRAMYCIN
     Indication: Product used for unknown indication
     Route: 065
  11. Imipeneme Cilastatine [Concomitant]
     Indication: Product used for unknown indication
     Route: 065
  12. PIPERACILLIN SODIUM\TAZOBACTAM SODIUM [Concomitant]
     Active Substance: PIPERACILLIN SODIUM\TAZOBACTAM SODIUM
     Indication: Product used for unknown indication
     Route: 065
  13. PLATELETS [Concomitant]
     Active Substance: HUMAN PLATELET, ALLOGENIC
     Indication: Myelodysplastic syndrome
     Route: 065
     Dates: start: 20210920, end: 20210920
  14. PLATELETS [Concomitant]
     Active Substance: HUMAN PLATELET, ALLOGENIC
     Route: 065
     Dates: start: 20211020, end: 20211020
  15. PLATELETS [Concomitant]
     Active Substance: HUMAN PLATELET, ALLOGENIC
     Route: 065
     Dates: start: 20211029, end: 20211029
  16. PLATELETS [Concomitant]
     Active Substance: HUMAN PLATELET, ALLOGENIC
     Route: 065
     Dates: start: 20211108, end: 20211108
  17. PLATELETS [Concomitant]
     Active Substance: HUMAN PLATELET, ALLOGENIC
     Route: 065
     Dates: start: 20211117, end: 20211117
  18. PLATELETS [Concomitant]
     Active Substance: HUMAN PLATELET, ALLOGENIC
     Route: 065
     Dates: start: 20211126, end: 20211126
  19. PLATELETS [Concomitant]
     Active Substance: HUMAN PLATELET, ALLOGENIC
     Route: 065
     Dates: start: 20211207, end: 20211207
  20. ALFUZOSIN [Concomitant]
     Active Substance: ALFUZOSIN
     Indication: Benign prostatic hyperplasia
     Dosage: 100 MILLIGRAM
     Route: 048
     Dates: start: 20220109
  21. FUROSEMIDE [Concomitant]
     Active Substance: FUROSEMIDE
     Indication: Fluid retention
     Dosage: 60 MILLIGRAM
     Route: 048
     Dates: start: 20220107

REACTIONS (2)
  - Pneumonia [Recovered/Resolved]
  - Pneumonia [Recovered/Resolved]

NARRATIVE: CASE EVENT DATE: 20211228
